FAERS Safety Report 18724663 (Version 3)
Quarter: 2021Q4

REPORT INFORMATION
  Report Type: Spontaneous
  Country: US (occurrence: US)
  Receive Date: 20210111
  Receipt Date: 20211008
  Transmission Date: 20220303
  Serious: No
  Sender: FDA-Public Use
  Company Number: US-MYLANLABS-2020M1106721

PATIENT
  Sex: Female
  Weight: 52 kg

DRUGS (3)
  1. LIDOCAINE PATCH [Suspect]
     Active Substance: LIDOCAINE
     Indication: Back pain
     Dosage: 5 PERCENT, QD
     Route: 003
     Dates: start: 20190702, end: 20200930
  2. LIDOCAINE PATCH [Suspect]
     Active Substance: LIDOCAINE
     Dosage: 5 PERCENT, QD
     Route: 003
  3. TYLENOL [Concomitant]
     Active Substance: ACETAMINOPHEN
     Indication: Back pain
     Dosage: AS NEEDED

REACTIONS (2)
  - Product adhesion issue [Recovering/Resolving]
  - Drug ineffective for unapproved indication [Not Recovered/Not Resolved]
